FAERS Safety Report 9334946 (Version 2)
Quarter: 2014Q3

REPORT INFORMATION
  Report Type: Spontaneous
  Country: US (occurrence: US)
  Receive Date: 20130606
  Receipt Date: 20140723
  Transmission Date: 20150326
  Serious: Yes (Other)
  Sender: FDA-Public Use
  Company Number: US-AMGEN-USASP2013030902

PATIENT
  Sex: Female

DRUGS (1)
  1. PROLIA [Suspect]
     Active Substance: DENOSUMAB
     Indication: OSTEOPOROSIS POSTMENOPAUSAL
     Dosage: UNK
     Route: 065
     Dates: start: 2012

REACTIONS (7)
  - Spinal deformity [Unknown]
  - Dental caries [Unknown]
  - Bone density decreased [Unknown]
  - Abdominal pain [Unknown]
  - Compression fracture [Unknown]
  - Bone disorder [Unknown]
  - Hypertension [Unknown]
